FAERS Safety Report 10173244 (Version 1)
Quarter: 2014Q2

REPORT INFORMATION
  Report Type: Spontaneous
  Country: US (occurrence: None)
  Receive Date: 20140514
  Receipt Date: 20140514
  Transmission Date: 20141212
  Serious: Yes (Life-Threatening, Hospitalization, Other)
  Sender: FDA-Public Use
  Company Number: None

PATIENT
  Age: 5 Year
  Sex: Male

DRUGS (3)
  1. PAROXETINE [Suspect]
     Indication: ANXIETY
     Dosage: 1 AT BED TIME
     Route: 048
     Dates: start: 20140301, end: 20140513
  2. PAROXETINE [Suspect]
     Indication: DEPRESSION
     Dosage: 1 AT BED TIME
     Route: 048
     Dates: start: 20140301, end: 20140513
  3. PAROXETINE [Suspect]
     Indication: POST-TRAUMATIC STRESS DISORDER
     Dosage: 1 AT BED TIME
     Route: 048
     Dates: start: 20140301, end: 20140513

REACTIONS (9)
  - Confusional state [None]
  - Agitation [None]
  - Decreased appetite [None]
  - Rash [None]
  - Lethargy [None]
  - Suicidal ideation [None]
  - Homicidal ideation [None]
  - Gait disturbance [None]
  - Emotional disorder [None]
